FAERS Safety Report 20190984 (Version 1)
Quarter: 2021Q4

REPORT INFORMATION
  Report Type: Report from Study
  Country: GB (occurrence: GB)
  Receive Date: 20211216
  Receipt Date: 20211216
  Transmission Date: 20220303
  Serious: Yes (Death, Hospitalization)
  Sender: FDA-Public Use
  Company Number: GB-SAMSUNG BIOEPIS-SB-2021-29244

PATIENT
  Sex: Male

DRUGS (1)
  1. ETANERCEPT [Suspect]
     Active Substance: ETANERCEPT
     Indication: Behcet^s syndrome
     Route: 058
     Dates: start: 20190716

REACTIONS (5)
  - Arterial disorder [Fatal]
  - Lung disorder [Fatal]
  - Asthma [Fatal]
  - Staphylococcal infection [Fatal]
  - Product use in unapproved indication [Unknown]
